FAERS Safety Report 19051039 (Version 1)
Quarter: 2021Q1

REPORT INFORMATION
  Report Type: Spontaneous
  Country: US (occurrence: US)
  Receive Date: 20210324
  Receipt Date: 20210324
  Transmission Date: 20210420
  Serious: No
  Sender: FDA-Public Use
  Company Number: US-ALLERGAN-2030717US

PATIENT
  Age: 80 Year
  Sex: Female
  Weight: 61.23 kg

DRUGS (3)
  1. MESALAZINE ? BP [Suspect]
     Active Substance: MESALAMINE
     Indication: DIVERTICULITIS
  2. MESALAZINE ? BP [Suspect]
     Active Substance: MESALAMINE
     Indication: FISTULA
  3. MESALAZINE ? BP [Suspect]
     Active Substance: MESALAMINE
     Indication: COLITIS ULCERATIVE
     Dosage: 1000 MG, QHS
     Route: 054

REACTIONS (5)
  - Product shape issue [Unknown]
  - Off label use [Unknown]
  - Abdominal pain upper [Recovered/Resolved]
  - Product colour issue [Unknown]
  - Poor quality product administered [Unknown]
